FAERS Safety Report 10168414 (Version 2)
Quarter: 2014Q2

REPORT INFORMATION
  Report Type: Spontaneous
  Country: SA (occurrence: SA)
  Receive Date: 20140513
  Receipt Date: 20140513
  Transmission Date: 20141212
  Serious: Yes (Other)
  Sender: FDA-Public Use
  Company Number: SA-ACCORD-023454

PATIENT
  Age: 12 Year
  Sex: Female

DRUGS (5)
  1. METHOTREXATE [Suspect]
     Indication: T-CELL LYMPHOMA
  2. CYTARABINE/CYTARABINE HYDROCHLORIDE/CYTARABINE OCFOSFATE [Suspect]
     Indication: T-CELL LYMPHOMA
  3. CICLOSPORIN [Suspect]
     Indication: T-CELL LYMPHOMA
  4. FLUDARABINE [Suspect]
     Indication: T-CELL LYMPHOMA
  5. MERCAPTOPURINE/MERCAPTOPURINE ANHYDROUS [Suspect]
     Indication: T-CELL LYMPHOMA

REACTIONS (9)
  - Posterior reversible encephalopathy syndrome [Unknown]
  - Progressive multifocal leukoencephalopathy [Unknown]
  - Encephalitis [Unknown]
  - Tuberculosis [Unknown]
  - Toxoplasmosis [Unknown]
  - Brain neoplasm [Unknown]
  - Visual impairment [Unknown]
  - Abnormal behaviour [Unknown]
  - Convulsion [Unknown]
